FAERS Safety Report 25047377 (Version 1)
Quarter: 2025Q1

REPORT INFORMATION
  Report Type: Spontaneous
  Country: JP (occurrence: JP)
  Receive Date: 20250306
  Receipt Date: 20250306
  Transmission Date: 20250409
  Serious: Yes (Other)
  Sender: ORGANON
  Company Number: JP-MEIJISEIKA-202501305_P_1

PATIENT
  Sex: Female

DRUGS (1)
  1. REFLEX [Suspect]
     Active Substance: MIRTAZAPINE
     Route: 048

REACTIONS (1)
  - Surgery [Unknown]
